FAERS Safety Report 22674353 (Version 3)
Quarter: 2024Q4

REPORT INFORMATION
  Report Type: Spontaneous
  Country: US (occurrence: US)
  Receive Date: 20230705
  Receipt Date: 20241112
  Transmission Date: 20250114
  Serious: Yes (Other)
  Sender: PFIZER
  Company Number: US-PFIZER INC-PV202300117623

PATIENT
  Age: 76 Year
  Sex: Female
  Weight: 113.65 kg

DRUGS (4)
  1. IBRANCE [Suspect]
     Active Substance: PALBOCICLIB
     Indication: Breast cancer metastatic
     Dosage: 1 TAB PO (ORAL) DAILY X 21 DAYS W/7 DAYS OFF ON A 28 DAY CYCLE
     Route: 048
  2. IBRANCE [Suspect]
     Active Substance: PALBOCICLIB
     Dosage: TAKE 1 TABLET DAILY DAYS 1-21 THEN 7 DAYS OFF ON A 28 DAY CYCLE
     Route: 048
  3. IBRANCE [Suspect]
     Active Substance: PALBOCICLIB
     Indication: Breast cancer metastatic
     Dosage: 125 MG, DAILY
     Route: 048
  4. IBRANCE [Suspect]
     Active Substance: PALBOCICLIB
     Dosage: UNK
     Dates: start: 20240812

REACTIONS (1)
  - Neutropenia [Unknown]
